FAERS Safety Report 18762474 (Version 1)
Quarter: 2021Q1

REPORT INFORMATION
  Report Type: Report from Study
  Country: IN (occurrence: IN)
  Receive Date: 20210120
  Receipt Date: 20210120
  Transmission Date: 20210419
  Serious: Yes (Death, Other)
  Sender: FDA-Public Use
  Company Number: PHHY2016IN079044

PATIENT
  Age: 66 Year
  Sex: Female

DRUGS (3)
  1. GLEEVEC [Suspect]
     Active Substance: IMATINIB MESYLATE
     Dosage: 600 MG, QD
     Route: 065
  2. GLEEVEC [Suspect]
     Active Substance: IMATINIB MESYLATE
     Dosage: 600 MG (1 X 400MG + 2 X 100MG TABLETS)
     Route: 065
  3. GLEEVEC [Suspect]
     Active Substance: IMATINIB MESYLATE
     Indication: CHRONIC MYELOID LEUKAEMIA
     Dosage: 400 MG
     Route: 065

REACTIONS (4)
  - Therapeutic response decreased [Unknown]
  - Platelet count decreased [Unknown]
  - Cytogenetic analysis abnormal [Unknown]
  - Death [Fatal]

NARRATIVE: CASE EVENT DATE: 20200316
